FAERS Safety Report 7036348-4 (Version None)
Quarter: 2010Q4

REPORT INFORMATION
  Report Type: 
  Country: None (occurrence: None)
  Receive Date: 20101008
  Receipt Date: 20100930
  Transmission Date: 20110411
  Serious: Yes (Other)
  Sender: FDA-Public Use
  Company Number: US-AMGEN-QUU442312

PATIENT
  Sex: Male

DRUGS (3)
  1. NPLATE [Suspect]
     Indication: IDIOPATHIC THROMBOCYTOPENIC PURPURA
     Dates: start: 20100520, end: 20100716
  2. CORTICOSTEROIDS [Concomitant]
     Dates: start: 20100503
  3. RITUXIMAB [Concomitant]
     Dates: start: 20030401, end: 20100518

REACTIONS (1)
  - PORTAL VEIN THROMBOSIS [None]
